FAERS Safety Report 8897183 (Version 1)
Quarter: 2012Q4

REPORT INFORMATION
  Report Type: 
  Country: US (occurrence: US)
  Receive Date: 20121108
  Receipt Date: 20121108
  Transmission Date: 20130627
  Serious: No
  Sender: FDA-Public Use
  Company Number: US-AMGEN-USASP2012028922

PATIENT
  Sex: Female

DRUGS (12)
  1. ENBREL [Suspect]
     Indication: PRODUCT USED FOR UNKNOWN INDICATION
     Dosage: 50 mg, qwk
     Route: 058
  2. SYNTHROID [Concomitant]
     Dosage: 100 mug, UNK
  3. LEFLUNOMIDE [Concomitant]
     Dosage: 20 mg, UNK
  4. METOPROLOL TARTRATE [Concomitant]
     Dosage: 50 mg, UNK
  5. PRAVASTATIN [Concomitant]
     Dosage: 80 mg, UNK
  6. ASPIRIN LOW [Concomitant]
     Dosage: 81 mg, UNK
  7. SINUS                              /00446801/ [Concomitant]
     Dosage: UNK
  8. GRAPE SEED [Concomitant]
     Dosage: 25 mg, UNK
  9. CO Q 10 [Concomitant]
     Dosage: 100 mg, UNK
  10. CALCIUM + VIT D [Suspect]
     Dosage: UNK
  11. OMEPRAZOLE [Concomitant]
     Dosage: 20.6 mg, UNK
  12. OMEGA 3                            /01334101/ [Concomitant]
     Dosage: 1000 mg, UNK

REACTIONS (1)
  - Rash [Unknown]
